FAERS Safety Report 15025424 (Version 1)
Quarter: 2018Q2

REPORT INFORMATION
  Report Type: Spontaneous
  Country: JP (occurrence: JP)
  Receive Date: 20180618
  Receipt Date: 20180618
  Transmission Date: 20180711
  Serious: Yes (Death, Hospitalization)
  Sender: FDA-Public Use
  Company Number: PHJP2018JP012659

PATIENT

DRUGS (1)
  1. VOTRIENT [Suspect]
     Active Substance: PAZOPANIB HYDROCHLORIDE
     Indication: RENAL CANCER
     Dosage: 800 MG, QD
     Route: 048

REACTIONS (5)
  - Renal failure [Fatal]
  - Haemothorax [Fatal]
  - Blood creatinine increased [Fatal]
  - General physical health deterioration [Fatal]
  - Renal impairment [Fatal]

NARRATIVE: CASE EVENT DATE: 201805
